FAERS Safety Report 12550912 (Version 2)
Quarter: 2016Q3

REPORT INFORMATION
  Report Type: Spontaneous
  Country: FR (occurrence: FR)
  Receive Date: 20160712
  Receipt Date: 20160912
  Transmission Date: 20161109
  Serious: Yes (Other)
  Sender: FDA-Public Use
  Company Number: PHHY2016FR094289

PATIENT
  Age: 73 Year
  Sex: Male

DRUGS (3)
  1. VOLTARENE [Suspect]
     Active Substance: DICLOFENAC SODIUM
     Indication: MUSCULOSKELETAL PAIN
     Dosage: (2 TO 6 DF), QD
     Route: 048
     Dates: start: 201601, end: 20160701
  2. VOLTARENE [Suspect]
     Active Substance: DICLOFENAC SODIUM
     Indication: NECK PAIN
  3. VOLTARENE [Suspect]
     Active Substance: DICLOFENAC SODIUM
     Indication: JOINT INJURY

REACTIONS (7)
  - Haemoglobin decreased [Not Recovered/Not Resolved]
  - Hyperkalaemia [Recovering/Resolving]
  - Inflammation [Not Recovered/Not Resolved]
  - Leukocytosis [Not Recovered/Not Resolved]
  - Blood urea increased [Recovering/Resolving]
  - Off label use [Unknown]
  - Metastases to spine [Unknown]

NARRATIVE: CASE EVENT DATE: 201601
